FAERS Safety Report 6243119-5 (Version None)
Quarter: 2009Q2

REPORT INFORMATION
  Report Type: 
  Country: None (occurrence: None)
  Receive Date: 20090622
  Receipt Date: 20090622
  Transmission Date: 20091009
  Serious: No
  Sender: FDA-Public Use
  Company Number: None

PATIENT
  Sex: Female
  Weight: 65.7716 kg

DRUGS (2)
  1. ZICAM [Suspect]
     Indication: NASOPHARYNGITIS
     Dosage: AS DIRECTED TWICE A DAY
     Dates: start: 20040401, end: 20090610
  2. ZICAM [Suspect]
     Indication: PROPHYLAXIS
     Dosage: AS DIRECTED TWICE A DAY
     Dates: start: 20040401, end: 20090610

REACTIONS (2)
  - AGEUSIA [None]
  - HYPOSMIA [None]
